FAERS Safety Report 5792230-1 (Version None)
Quarter: 2008Q2

REPORT INFORMATION
  Report Type: 
  Country: None (occurrence: None)
  Receive Date: 20080626
  Receipt Date: 20080612
  Transmission Date: 20081010
  Serious: Yes (Hospitalization)
  Sender: FDA-Public Use
  Company Number: CA-GENENTECH-224983

PATIENT
  Sex: Female
  Weight: 47 kg

DRUGS (10)
  1. BEVACIZUMAB [Suspect]
     Indication: COLORECTAL CANCER
     Dosage: 345 MG, Q3W
     Route: 042
     Dates: start: 20060411, end: 20060520
  2. CAPECITABINE [Suspect]
     Indication: COLORECTAL CANCER
     Dosage: 1300 MG, BID
     Route: 048
     Dates: start: 20060228
  3. OXALIPLATIN [Suspect]
     Indication: COLORECTAL CANCER
     Dosage: 182 MG, Q3W
     Route: 042
     Dates: start: 20060301
  4. MULTIVITAMIN - UNSPECIFIED [Concomitant]
     Indication: DRUG USE FOR UNKNOWN INDICATION
  5. IRON [Concomitant]
     Indication: DRUG USE FOR UNKNOWN INDICATION
     Dosage: UNK, UNK
     Dates: start: 20060226
  6. GRANISETRON HCL [Concomitant]
     Indication: DRUG USE FOR UNKNOWN INDICATION
     Dates: start: 20060301
  7. DEXAMETHASONE [Concomitant]
     Indication: DRUG USE FOR UNKNOWN INDICATION
     Dates: start: 20060301
  8. PROCHLORPERAZINE [Concomitant]
     Indication: DRUG USE FOR UNKNOWN INDICATION
     Dosage: UNK, UNK
     Dates: start: 20060301
  9. MOXIFLOXACIN HCL [Concomitant]
     Indication: DRUG USE FOR UNKNOWN INDICATION
     Dates: start: 20060429
  10. METRONIDAZOLE HCL [Concomitant]
     Indication: DRUG USE FOR UNKNOWN INDICATION
     Dates: start: 20060429

REACTIONS (1)
  - PYREXIA [None]
